FAERS Safety Report 6124735-8 (Version None)
Quarter: 2009Q1

REPORT INFORMATION
  Report Type: 
  Country: None (occurrence: None)
  Receive Date: 20090319
  Receipt Date: 20090316
  Transmission Date: 20090719
  Serious: Yes (Other)
  Sender: FDA-Public Use
  Company Number: US-KINGPHARMUSA00001-K200900293

PATIENT
  Sex: Female

DRUGS (2)
  1. FLECTOR [Suspect]
     Dosage: UNK PATCH, UNK
     Route: 061
     Dates: start: 20090223
  2. NORVASC [Concomitant]
     Indication: HYPERTENSION
     Dosage: UNK
     Dates: start: 20080101

REACTIONS (5)
  - BLISTER [None]
  - DELUSION [None]
  - MALAISE [None]
  - PAIN [None]
  - RASH [None]
